FAERS Safety Report 7495409-6 (Version None)
Quarter: 2011Q2

REPORT INFORMATION
  Report Type: 
  Country: None (occurrence: None)
  Receive Date: 20110513
  Receipt Date: 20110509
  Transmission Date: 20111010
  Serious: Yes (Other)
  Sender: FDA-Public Use
  Company Number: 20109612

PATIENT
  Sex: Male

DRUGS (1)
  1. BACLOFEN [Suspect]
     Indication: MUSCLE SPASTICITY
     Dosage: DAILY, INTRATHECAL
     Route: 037

REACTIONS (5)
  - DEVICE CONNECTION ISSUE [None]
  - DEVICE DAMAGE [None]
  - DEVICE BREAKAGE [None]
  - IMPLANT SITE SWELLING [None]
  - IMPLANT SITE EFFUSION [None]
